FAERS Safety Report 7612298-7 (Version None)
Quarter: 2011Q3

REPORT INFORMATION
  Report Type: 
  Country: None (occurrence: None)
  Receive Date: 20110715
  Receipt Date: 20110712
  Transmission Date: 20111222
  Serious: Yes (Hospitalization)
  Sender: FDA-Public Use
  Company Number: US-GILEAD-2011-0041360

PATIENT
  Sex: Male

DRUGS (17)
  1. POTASSIUM [Concomitant]
  2. VITAMIN D [Concomitant]
  3. LETAIRIS [Suspect]
     Indication: PULMONARY HYPERTENSION
     Route: 048
     Dates: start: 20110527
  4. SPIRONOLACTONE [Concomitant]
  5. AMBIEN [Concomitant]
  6. OXYCODONE HCL [Concomitant]
  7. ZOLOFT [Concomitant]
  8. ADCIRCA [Concomitant]
  9. AMIODARONE HCL [Concomitant]
  10. COUMADIN [Concomitant]
  11. FERGON [Concomitant]
  12. METOLAZONE [Concomitant]
  13. LASIX [Concomitant]
  14. ASPIRIN [Concomitant]
  15. MAGNESIUM OXIDE [Concomitant]
  16. OMEPRAZOLE [Concomitant]
  17. ALPRAZOLAM [Concomitant]

REACTIONS (1)
  - PYREXIA [None]
